FAERS Safety Report 8489734-X (Version None)
Quarter: 2012Q3

REPORT INFORMATION
  Report Type: 
  Country: None (occurrence: None)
  Receive Date: 20120705
  Receipt Date: 20120626
  Transmission Date: 20120928
  Serious: Yes (Other)
  Sender: FDA-Public Use
  Company Number: JP-GLAXOSMITHKLINE-B0811395A

PATIENT
  Sex: Male

DRUGS (1)
  1. FLUTICASONE PROPIONATE [Suspect]
     Indication: ASTHMA
     Dosage: 400MCG PER DAY
     Route: 055

REACTIONS (2)
  - OESOPHAGEAL CANDIDIASIS [None]
  - OROPHARYNGEAL DISCOMFORT [None]
